FAERS Safety Report 18667234 (Version 1)
Quarter: 2020Q4

REPORT INFORMATION
  Report Type: Report from Study
  Country: CO (occurrence: CO)
  Receive Date: 20201228
  Receipt Date: 20201228
  Transmission Date: 20210114
  Serious: Yes (Life-Threatening, Other)
  Sender: FDA-Public Use
  Company Number: CO-JNJFOC-20200912660

PATIENT
  Age: 65 Year
  Sex: Female
  Weight: 58 kg

DRUGS (3)
  1. USTEKINUMAB [Suspect]
     Active Substance: USTEKINUMAB
     Indication: SYSTEMIC LUPUS ERYTHEMATOSUS
     Route: 058
     Dates: start: 20191024
  2. DEFLAZACORT [Concomitant]
     Active Substance: DEFLAZACORT
     Route: 048
     Dates: start: 201903, end: 20200518
  3. DEFLAZACORT [Concomitant]
     Active Substance: DEFLAZACORT
     Route: 048
     Dates: start: 20200520

REACTIONS (1)
  - COVID-19 [Recovered/Resolved]

NARRATIVE: CASE EVENT DATE: 20200825
